FAERS Safety Report 18526243 (Version 1)
Quarter: 2020Q4

REPORT INFORMATION
  Report Type: Spontaneous
  Country: JP (occurrence: JP)
  Receive Date: 20201120
  Receipt Date: 20201120
  Transmission Date: 20210114
  Serious: Yes (Other)
  Sender: FDA-Public Use
  Company Number: NVSJ2020JP008589

PATIENT
  Age: 70 Year
  Sex: Male

DRUGS (2)
  1. BEOVU [Suspect]
     Active Substance: BROLUCIZUMAB-DBLL
     Indication: POLYPOIDAL CHOROIDAL VASCULOPATHY
     Dosage: 6 MG
     Route: 031
     Dates: start: 20200706, end: 20200706
  2. BEOVU [Suspect]
     Active Substance: BROLUCIZUMAB-DBLL
     Dosage: 6 MG
     Route: 031
     Dates: start: 20200805, end: 20200805

REACTIONS (6)
  - Retinal vasculitis [Recovered/Resolved]
  - Retinal perivascular sheathing [Recovered/Resolved]
  - Vitreous floaters [Unknown]
  - Vision blurred [Unknown]
  - Product use in unapproved indication [Unknown]
  - Vitreal cells [Recovered/Resolved]

NARRATIVE: CASE EVENT DATE: 20200805
